FAERS Safety Report 16661224 (Version 1)
Quarter: 2019Q3

REPORT INFORMATION
  Report Type: Spontaneous
  Country: US (occurrence: US)
  Receive Date: 20190802
  Receipt Date: 20190802
  Transmission Date: 20191004
  Serious: Yes (Other)
  Sender: FDA-Public Use
  Company Number: US-HIKMA PHARMACEUTICALS USA INC.-US-H14001-19-04389

PATIENT
  Age: 26 Year
  Sex: Female
  Weight: 88 kg

DRUGS (3)
  1. LIDOCAINE. [Suspect]
     Active Substance: LIDOCAINE
     Indication: EPIDURAL ANAESTHESIA
     Route: 008
  2. CHLOROPROCAINE [Suspect]
     Active Substance: CHLOROPROCAINE
     Indication: EPIDURAL ANAESTHESIA
     Dosage: IN 5-ML INCREMENTS, EVERY 2 MINUTES
     Route: 008
  3. EPINEPHRINE. [Suspect]
     Active Substance: EPINEPHRINE
     Indication: EPIDURAL ANAESTHESIA
     Route: 008

REACTIONS (3)
  - Paralysis [Recovered/Resolved]
  - Maternal exposure during delivery [Recovered/Resolved]
  - Dyspnoea [Recovering/Resolving]
